FAERS Safety Report 6157889-8 (Version None)
Quarter: 2009Q2

REPORT INFORMATION
  Report Type: 
  Country: None (occurrence: None)
  Receive Date: 20090417
  Receipt Date: 20070809
  Transmission Date: 20091009
  Serious: Yes (Hospitalization)
  Sender: FDA-Public Use
  Company Number: US-ASTRAZENECA-2006UW05183

PATIENT
  Age: 16215 Day
  Sex: Female
  Weight: 73.9 kg

DRUGS (27)
  1. SEROQUEL [Suspect]
     Route: 048
     Dates: start: 20000801, end: 20010401
  2. RISPERDAL [Suspect]
     Dates: start: 20000801, end: 20001101
  3. PRAVACHOL [Concomitant]
  4. GLUCOPHAGE XR [Concomitant]
  5. WELLBUTRIN SR [Concomitant]
  6. LEVAQUIN [Concomitant]
  7. GEODON [Concomitant]
  8. CHANTIX [Concomitant]
  9. ABILIFY [Concomitant]
  10. TRAZODONE HCL [Concomitant]
  11. AMBIEN [Concomitant]
  12. LAMISIL [Concomitant]
  13. LIPITOR [Concomitant]
  14. DEPAKOTE [Concomitant]
  15. SONATA [Concomitant]
  16. ETODOLAC [Concomitant]
  17. METHYLPREDNISOLONE 4MG TAB [Concomitant]
  18. NAPROXEN [Concomitant]
  19. COMBIVENT [Concomitant]
  20. PREDNISONE [Concomitant]
  21. CELEXA [Concomitant]
  22. PROPOXYPHENE HCL CAP [Concomitant]
  23. AZMACORT [Concomitant]
  24. SPIRONOLACTONE [Concomitant]
  25. VENTOLIN [Concomitant]
  26. TRILOFAN [Concomitant]
  27. COGENTIN [Concomitant]

REACTIONS (17)
  - ASTHMA [None]
  - BRONCHITIS [None]
  - BRONCHOSPASM [None]
  - BURSITIS [None]
  - CELLULITIS [None]
  - CONTUSION [None]
  - DIABETES MELLITUS [None]
  - FATIGUE [None]
  - GASTROOESOPHAGEAL REFLUX DISEASE [None]
  - HEPATIC ENZYME INCREASED [None]
  - MAJOR DEPRESSION [None]
  - MUSCULOSKELETAL CHEST PAIN [None]
  - ONYCHOMYCOSIS [None]
  - PERIARTHRITIS [None]
  - SCHIZOTYPAL PERSONALITY DISORDER [None]
  - SKIN LESION [None]
  - STRESS URINARY INCONTINENCE [None]
